FAERS Safety Report 4666432-1 (Version None)
Quarter: 2005Q2

REPORT INFORMATION
  Report Type: 
  Country: None (occurrence: None)
  Receive Date: 20050517
  Receipt Date: 20050502
  Transmission Date: 20051028
  Serious: Yes (Hospitalization)
  Sender: FDA-Public Use
  Company Number: S05-USA-00523-01

PATIENT
  Age: 60 Year
  Sex: Female
  Weight: 116.1208 kg

DRUGS (43)
  1. LEXAPRO [Suspect]
     Indication: DEPRESSION
     Dosage: 20 MG QD PO
     Route: 048
     Dates: start: 20030301
  2. LEXAPRO [Suspect]
     Indication: DEPRESSION
     Dosage: 30 MG QD PO
     Route: 048
     Dates: end: 20040101
  3. LEXAPRO [Suspect]
     Indication: DEPRESSION
     Dosage: 10 MG QD PO
     Route: 048
     Dates: start: 20040101, end: 20040101
  4. LEXAPRO [Suspect]
     Indication: DEPRESSION
     Dosage: 20 MG QD PO
     Route: 048
     Dates: start: 20040101, end: 20040601
  5. LEXAPRO [Suspect]
     Indication: DEPRESSION
     Dosage: 30 MG QD PO
     Route: 048
     Dates: start: 20040601, end: 20040101
  6. WELLBUTRIN [Suspect]
     Indication: DEPRESSION
     Dosage: 300 MG QD PO
     Route: 048
     Dates: end: 20040101
  7. WELLBUTRIN [Suspect]
     Indication: DEPRESSION
     Dosage: 150 MG BID
     Dates: start: 20040101, end: 20040101
  8. WELLBUTRIN [Suspect]
     Indication: DEPRESSION
     Dosage: 300 MG QD PO
     Route: 048
     Dates: start: 20040101, end: 20040601
  9. WELLBUTRIN [Suspect]
     Indication: DEPRESSION
     Dosage: 150 MG QD PO
     Route: 048
     Dates: start: 20040601
  10. ATENOLOL [Concomitant]
  11. POTASSIUM CHLORIDE [Concomitant]
  12. ZOCOR [Concomitant]
  13. ASPIRIN [Concomitant]
  14. NEXIUM [Concomitant]
  15. ARICEPT [Concomitant]
  16. DURAGESIC(FENTANYL) [Concomitant]
  17. HYDROCODONE BITARTRATE [Concomitant]
  18. MULTIVITAMIN [Concomitant]
  19. MAGNESIUM [Concomitant]
  20. VITAMIN B-12 [Concomitant]
  21. DIAZEPAM [Concomitant]
  22. ALTACE [Concomitant]
  23. DEMADEX [Concomitant]
  24. SKELAXIN [Concomitant]
  25. ISORDIL(ISOSORSIDE DINITRATE) [Concomitant]
  26. GLUCOPHAGE [Concomitant]
  27. ACETAZOLAMIDE [Concomitant]
  28. XALATAN [Concomitant]
  29. OXYCONTIN [Concomitant]
  30. MICONAZOLE [Concomitant]
  31. HUMULIN [Concomitant]
  32. ASTELIN [Concomitant]
  33. MECLIZINE [Concomitant]
  34. NORVASC [Concomitant]
  35. ROCEPHIN [Concomitant]
  36. TOBRAMYCIN [Concomitant]
  37. HYDRALAZINE HCL [Concomitant]
  38. PROTONIX [Concomitant]
  39. VALIUM [Concomitant]
  40. LORCET-HD [Concomitant]
  41. DIAMOX [Concomitant]
  42. AVANDIA (ROSILGLITAZONE MALEATE) [Concomitant]
  43. NITROL [Concomitant]

REACTIONS (34)
  - ACUTE SINUSITIS [None]
  - ANAEMIA OF CHRONIC DISEASE [None]
  - ASTHENIA [None]
  - BACK PAIN [None]
  - BACTERIAL SEPSIS [None]
  - BLOOD GLUCOSE INCREASED [None]
  - CATHETER SEPSIS [None]
  - CHEST PAIN [None]
  - CHEST WALL PAIN [None]
  - CLOSTRIDIUM COLITIS [None]
  - COMA [None]
  - CONFUSIONAL STATE [None]
  - DEPRESSION [None]
  - DISEASE RECURRENCE [None]
  - DRUG INTERACTION [None]
  - ELECTROLYTE IMBALANCE [None]
  - FALL [None]
  - FLUID OVERLOAD [None]
  - HYPERCAPNIA [None]
  - HYPERKALAEMIA [None]
  - HYPOTENSION [None]
  - HYPOXIA [None]
  - METABOLIC ACIDOSIS [None]
  - MUSCULOSKELETAL DISCOMFORT [None]
  - NEUROPATHY [None]
  - PNEUMONIA BACTERIAL [None]
  - PULMONARY HYPERTENSION [None]
  - RENAL FAILURE ACUTE [None]
  - RESPIRATORY FAILURE [None]
  - STAPHYLOCOCCAL INFECTION [None]
  - STENOTROPHOMONAS INFECTION [None]
  - SYNCOPE [None]
  - TREMOR [None]
  - URINARY TRACT INFECTION [None]
